FAERS Safety Report 9335799 (Version 2)
Quarter: 2013Q2

REPORT INFORMATION
  Report Type: Spontaneous
  Country: US (occurrence: US)
  Receive Date: 20130606
  Receipt Date: 20130606
  Transmission Date: 20140414
  Serious: No
  Sender: FDA-Public Use
  Company Number: US-AMGEN-USASP2013022555

PATIENT
  Age: 63 Year
  Sex: Female
  Weight: 47.17 kg

DRUGS (3)
  1. PROLIA [Suspect]
     Indication: OSTEOPOROSIS
     Dosage: 60 MG, UNK
     Route: 058
     Dates: start: 20120910
  2. PROLIA [Suspect]
     Dosage: 60 UNK, UNK
     Dates: start: 20130213
  3. DIAMOX /00016901/ [Suspect]
     Indication: INTRAOCULAR PRESSURE INCREASED
     Dosage: UNK
     Route: 047
     Dates: start: 20130311, end: 20130315

REACTIONS (6)
  - Nausea [Recovered/Resolved]
  - Vomiting [Recovered/Resolved]
  - Gastrointestinal disorder [Recovering/Resolving]
  - Paraesthesia [Recovered/Resolved]
  - Eye disorder [Unknown]
  - Intraocular pressure increased [Unknown]
